FAERS Safety Report 4351969-5 (Version None)
Quarter: 2004Q2

REPORT INFORMATION
  Report Type: 
  Country: None (occurrence: None)
  Receive Date: 20040429
  Receipt Date: 20040129
  Transmission Date: 20050107
  Serious: No
  Sender: FDA-Public Use
  Company Number: 2004-112910-NL

PATIENT
  Age: 30 Year
  Sex: Female

DRUGS (2)
  1. NUVARING [Suspect]
     Indication: CHLOASMA
     Dosage: DF DAILY VAGINAL
     Route: 067
     Dates: end: 20040127
  2. NUVARING [Suspect]
     Indication: CONTRACEPTION
     Dosage: DF DAILY VAGINAL
     Route: 067
     Dates: end: 20040127

REACTIONS (4)
  - MALAISE [None]
  - NAUSEA [None]
  - PYREXIA [None]
  - RASH [None]
